FAERS Safety Report 5975586-6 (Version None)
Quarter: 2008Q4

REPORT INFORMATION
  Report Type: 
  Country: None (occurrence: None)
  Receive Date: 20081202
  Receipt Date: 20081121
  Transmission Date: 20090506
  Serious: Yes (Other)
  Sender: FDA-Public Use
  Company Number: US-JNJFOC-20081006641

PATIENT
  Sex: Female
  Weight: 54.43 kg

DRUGS (1)
  1. TRAMADOL HCL [Suspect]
     Indication: TOOTHACHE
     Route: 048
     Dates: start: 20081014, end: 20081016

REACTIONS (3)
  - CARDIAC DISORDER [None]
  - MUSCLE SPASMS [None]
  - SHOCK [None]
